FAERS Safety Report 20508843 (Version 2)
Quarter: 2022Q1

REPORT INFORMATION
  Report Type: Spontaneous
  Country: NL (occurrence: NL)
  Receive Date: 20220223
  Receipt Date: 20220323
  Transmission Date: 20220423
  Serious: Yes (Other)
  Sender: FDA-Public Use
  Company Number: None

PATIENT
  Age: 23 Year
  Sex: Female
  Weight: 95 kg

DRUGS (18)
  1. TOPAMAX [Suspect]
     Active Substance: TOPIRAMATE
     Indication: Post-traumatic stress disorder
     Dosage: 1XD
     Route: 048
     Dates: start: 20220202
  2. TOPAMAX [Suspect]
     Active Substance: TOPIRAMATE
     Indication: Nightmare
  3. OXAZEPAM [Concomitant]
     Active Substance: OXAZEPAM
  4. DYMISTA [Concomitant]
     Active Substance: AZELASTINE HYDROCHLORIDE\FLUTICASONE PROPIONATE
     Dosage: 137/50 UG/DOSE
  5. ASCORBIC ACID [Concomitant]
     Active Substance: ASCORBIC ACID
  6. RIZATRIPTAN [Concomitant]
     Active Substance: RIZATRIPTAN
  7. VENTOLIN [Concomitant]
     Active Substance: ALBUTEROL SULFATE
     Dosage: 200 UG/DOSE
  8. METHYLPHENIDATE HYDROCHLORIDE [Concomitant]
     Active Substance: METHYLPHENIDATE HYDROCHLORIDE
  9. LOCOID [Concomitant]
     Active Substance: HYDROCORTISONE BUTYRATE
     Dosage: CREME, 1 MG/G (MILLIGRAM PER GRAM)
  10. CORTIFIL [Concomitant]
     Dosage: CREME, 0,5 MG/G (MILLIGRAM PER GRAM)
  11. ALLERGOVIT [Concomitant]
  12. METOPROLOL [Concomitant]
     Active Substance: METOPROLOL
     Dosage: TABLET, 50 MG (MILLIGRAM)
  13. EBASTINE [Concomitant]
     Active Substance: EBASTINE
     Dosage: 2X 10MG
  14. BRINTELLIX [Concomitant]
     Active Substance: VORTIOXETINE HYDROBROMIDE
     Dosage: TABLET, 20 MG (MILLIGRAM)
  15. SYMBICORT [Concomitant]
     Active Substance: BUDESONIDE\FORMOTEROL FUMARATE DIHYDRATE
     Dosage: AEROSOL, 200/6 UG/DOSE (MICROGRAM PER DOSE)
  16. PANTOPRAZOLE [Concomitant]
     Active Substance: PANTOPRAZOLE
     Dosage: TABLET, 20 MG (MILLIGRAM)
  17. SEROQUEL [Concomitant]
     Active Substance: QUETIAPINE FUMARATE
     Dosage: 25 MG (MILLIGRAM)
  18. MONTELUKAST [Concomitant]
     Active Substance: MONTELUKAST SODIUM
     Dosage: 10 MG (MILLIGRAM)

REACTIONS (11)
  - Bradycardia [Not Recovered/Not Resolved]
  - Sexual dysfunction [Not Recovered/Not Resolved]
  - Weight decreased [Not Recovered/Not Resolved]
  - Emotional poverty [Not Recovered/Not Resolved]
  - Nocturia [Recovered/Resolved]
  - Decreased appetite [Not Recovered/Not Resolved]
  - Fatigue [Recovering/Resolving]
  - Product use in unapproved indication [Unknown]
  - Off label use [Unknown]
  - Visual impairment [Not Recovered/Not Resolved]
  - Hypotension [Recovering/Resolving]

NARRATIVE: CASE EVENT DATE: 20220202
